FAERS Safety Report 10590104 (Version 1)
Quarter: 2014Q4

REPORT INFORMATION
  Report Type: Spontaneous
  Country: PK (occurrence: None)
  Receive Date: 20141117
  Receipt Date: 20141117
  Transmission Date: 20150529
  Serious: Yes (Hospitalization, Other)
  Sender: FDA-Public Use
  Company Number: None

PATIENT
  Age: 38 Year
  Sex: Male
  Weight: 67 kg

DRUGS (1)
  1. CITALOPRAM [Suspect]
     Active Substance: CITALOPRAM HYDROBROMIDE
     Indication: DEPRESSION
     Dosage: 5 MG  ONCE DAILY  TAKEN BY  MOUTH
     Route: 048

REACTIONS (7)
  - Hot flush [None]
  - Heart rate increased [None]
  - Chest discomfort [None]
  - Tremor [None]
  - Dyspnoea [None]
  - Blood pressure increased [None]
  - Panic attack [None]

NARRATIVE: CASE EVENT DATE: 20141011
